FAERS Safety Report 16736036 (Version 1)
Quarter: 2019Q4

REPORT INFORMATION
  Report Type: Spontaneous
  Country: US (occurrence: US)
  Receive Date: 20190823
  Receipt Date: 20190823
  Transmission Date: 20200122
  Serious: No
  Sender: FDA-Public Use
  Company Number: None

PATIENT
  Age: 77 Year
  Sex: Male
  Weight: 66.87 kg

DRUGS (22)
  1. FENOFIBRATE. [Concomitant]
     Active Substance: FENOFIBRATE
  2. AMLODIPINE [Concomitant]
     Active Substance: AMLODIPINE BESYLATE
  3. CALTRATE 600+D [Concomitant]
  4. DULOXETINE. [Concomitant]
     Active Substance: DULOXETINE
  5. PROGRAF [Concomitant]
     Active Substance: TACROLIMUS
  6. CARVEDILOL. [Concomitant]
     Active Substance: CARVEDILOL
  7. RANITIDINE. [Concomitant]
     Active Substance: RANITIDINE
  8. ACYCLOVIR. [Concomitant]
     Active Substance: ACYCLOVIR
  9. KLOR-CON M20 [Concomitant]
     Active Substance: POTASSIUM CHLORIDE
  10. LANTUS [Concomitant]
     Active Substance: INSULIN GLARGINE
  11. OXYCONTIN [Concomitant]
     Active Substance: OXYCODONE HYDROCHLORIDE
  12. PREDNISONE. [Concomitant]
     Active Substance: PREDNISONE
  13. BACTRIM [Concomitant]
     Active Substance: SULFAMETHOXAZOLE\TRIMETHOPRIM
  14. VITAMIN A [Concomitant]
     Active Substance: VITAMIN A
  15. AFINITOR [Concomitant]
     Active Substance: EVEROLIMUS
  16. PLAVIX [Concomitant]
     Active Substance: CLOPIDOGREL BISULFATE
  17. PRAVASTATIN. [Concomitant]
     Active Substance: PRAVASTATIN
  18. INLYTA [Suspect]
     Active Substance: AXITINIB
     Indication: RENAL CANCER
     Route: 048
     Dates: start: 20190726, end: 20190823
  19. ASPIRIN. [Concomitant]
     Active Substance: ASPIRIN
  20. COLACE [Concomitant]
     Active Substance: DOCUSATE SODIUM
  21. QUINAPRIL. [Concomitant]
     Active Substance: QUINAPRIL
  22. VITAMIN D3 [Concomitant]
     Active Substance: CHOLECALCIFEROL

REACTIONS (1)
  - Hospice care [None]

NARRATIVE: CASE EVENT DATE: 20190823
